FAERS Safety Report 22051181 (Version 1)
Quarter: 2023Q1

REPORT INFORMATION
  Report Type: Report from Study
  Country: DE (occurrence: DE)
  Receive Date: 20230301
  Receipt Date: 20230301
  Transmission Date: 20230418
  Serious: Yes (Other)
  Sender: FDA-Public Use
  Company Number: DE-BRISTOL-MYERS SQUIBB COMPANY-2023-005606

PATIENT
  Age: 81 Year
  Sex: Male
  Weight: 78.9 kg

DRUGS (6)
  1. DEXAMETHASONE SODIUM PHOSPHATE [Suspect]
     Active Substance: DEXAMETHASONE SODIUM PHOSPHATE
     Indication: Plasma cell myeloma
     Dosage: LINE 2.
     Route: 065
     Dates: start: 20210630, end: 20211208
  2. DEXAMETHASONE SODIUM PHOSPHATE [Suspect]
     Active Substance: DEXAMETHASONE SODIUM PHOSPHATE
     Dosage: LINE 2.
     Route: 065
     Dates: end: 20221207
  3. REVLIMID [Suspect]
     Active Substance: LENALIDOMIDE
     Indication: Plasma cell myeloma
     Dosage: LINE 2., DAYS 1-21, QD 29
     Route: 065
     Dates: start: 20211117, end: 20211207
  4. REVLIMID [Suspect]
     Active Substance: LENALIDOMIDE
     Dosage: LINE 2.
     Route: 065
     Dates: end: 20221206
  5. DARATUMUMAB [Suspect]
     Active Substance: DARATUMUMAB
     Indication: Plasma cell myeloma
     Dosage: LINE 2.
     Route: 065
     Dates: start: 20210630, end: 20211201
  6. DARATUMUMAB [Suspect]
     Active Substance: DARATUMUMAB
     Dosage: LINE 2.
     Route: 065
     Dates: end: 20221214

REACTIONS (2)
  - Thrombosis [Recovered/Resolved]
  - Off label use [Unknown]

NARRATIVE: CASE EVENT DATE: 20211209
